FAERS Safety Report 8317849-5 (Version None)
Quarter: 2012Q2

REPORT INFORMATION
  Report Type: 
  Country: None (occurrence: None)
  Receive Date: 20120427
  Receipt Date: 20120419
  Transmission Date: 20120825
  Serious: Yes (Hospitalization)
  Sender: FDA-Public Use
  Company Number: US-BAYER-2012-004988

PATIENT
  Age: 19 Year
  Sex: Female
  Weight: 73.469 kg

DRUGS (8)
  1. VITAMIN D + CALCIUM [Concomitant]
     Dosage: UNK UNK, BID
     Route: 048
  2. YASMIN [Suspect]
     Indication: ACNE
     Dosage: UNK
     Dates: start: 20060401, end: 20060601
  3. ZOLOFT [Concomitant]
     Indication: ANXIETY
     Dosage: UNK UNK, QD
     Dates: start: 20040101, end: 20110101
  4. FOCALIN [Concomitant]
  5. AZITHROMYCIN [Concomitant]
     Indication: CONJUNCTIVITIS
     Dosage: 250 MG/2 TABLETS ON DAY 1 THEN ONE TABLET ON DAYS 2-5
     Dates: start: 20090202
  6. YAZ [Suspect]
     Indication: ACNE
     Dosage: UNK
     Route: 048
     Dates: start: 20070101, end: 20090223
  7. FOLIC ACID [Concomitant]
     Indication: ATTENTION DEFICIT/HYPERACTIVITY DISORDER
     Dosage: 20 MG, QD
     Dates: start: 20050101, end: 20110101
  8. MULTI-VITAMIN [Concomitant]
     Dosage: 1/DAILY
     Route: 048

REACTIONS (6)
  - ANXIETY [None]
  - DEEP VEIN THROMBOSIS [None]
  - PAIN [None]
  - EMOTIONAL DISTRESS [None]
  - INJURY [None]
  - GENERAL PHYSICAL HEALTH DETERIORATION [None]
